FAERS Safety Report 9027366 (Version 1)
Quarter: 2013Q1

REPORT INFORMATION
  Report Type: Spontaneous
  Country: DE (occurrence: DE)
  Receive Date: 20130123
  Receipt Date: 20130123
  Transmission Date: 20140127
  Serious: Yes (Disabling, Congenital Anomaly)
  Sender: FDA-Public Use
  Company Number: DE-TEVA-379963GER

PATIENT
  Sex: Female
  Weight: 1.96 kg

DRUGS (1)
  1. VENLAFAXIN [Suspect]
     Route: 064

REACTIONS (3)
  - Congenital anomaly [Not Recovered/Not Resolved]
  - Congenital hand malformation [Not Recovered/Not Resolved]
  - Congenital foot malformation [Not Recovered/Not Resolved]
